FAERS Safety Report 7081685-0 (Version None)
Quarter: 2010Q4

REPORT INFORMATION
  Report Type: 
  Country: None (occurrence: None)
  Receive Date: 20101103
  Receipt Date: 20101026
  Transmission Date: 20110411
  Serious: Yes (Other)
  Sender: FDA-Public Use
  Company Number: US-PERRIGO-10US014249

PATIENT
  Sex: Female
  Weight: 81.633 kg

DRUGS (2)
  1. ACETAMINOPHEN [Suspect]
     Indication: TOOTHACHE
     Dosage: 6000 MG WITHIN 15 MINUTES
     Route: 048
     Dates: start: 20101026, end: 20101026
  2. FLUOXETINE [Concomitant]
     Indication: DEPRESSION
     Dosage: 20 MG, QD
     Route: 065

REACTIONS (4)
  - BLOOD TEST ABNORMAL [None]
  - DRUG INEFFECTIVE [None]
  - INTENTIONAL OVERDOSE [None]
  - NAUSEA [None]
